FAERS Safety Report 9621037 (Version 8)
Quarter: 2015Q2

REPORT INFORMATION
  Report Type: Report from Study
  Country: CA (occurrence: CA)
  Receive Date: 20131015
  Receipt Date: 20150611
  Transmission Date: 20150821
  Serious: Yes (Other)
  Sender: FDA-Public Use
  Company Number: PHHY2013CA113979

PATIENT
  Sex: Female

DRUGS (4)
  1. LIPITOR [Concomitant]
     Active Substance: ATORVASTATIN CALCIUM
     Indication: PRODUCT USED FOR UNKNOWN INDICATION
     Dosage: UNK
     Route: 065
  2. GLEEVEC [Suspect]
     Active Substance: IMATINIB MESYLATE
     Indication: CHRONIC MYELOID LEUKAEMIA
     Dosage: 400 MG, QD
     Route: 048
     Dates: start: 20040601
  3. CALCIUM [Concomitant]
     Active Substance: CALCIUM
     Indication: PRODUCT USED FOR UNKNOWN INDICATION
     Dosage: UNK
     Route: 065
  4. ATORVASTATIN [Concomitant]
     Active Substance: ATORVASTATIN
     Indication: PRODUCT USED FOR UNKNOWN INDICATION
     Route: 065

REACTIONS (26)
  - Pulmonary mass [Unknown]
  - Nausea [Unknown]
  - Peripheral swelling [Unknown]
  - Weight increased [Unknown]
  - Cardiovascular disorder [Unknown]
  - Rash [Recovered/Resolved]
  - Myalgia [Unknown]
  - Arthralgia [Not Recovered/Not Resolved]
  - Breast cancer [Unknown]
  - Fluid retention [Unknown]
  - Eye swelling [Unknown]
  - Joint swelling [Not Recovered/Not Resolved]
  - Fatigue [Unknown]
  - Cough [Not Recovered/Not Resolved]
  - Eye haemorrhage [Unknown]
  - Sleep apnoea syndrome [Unknown]
  - Hair texture abnormal [Unknown]
  - Muscle spasms [Unknown]
  - Arthritis [Not Recovered/Not Resolved]
  - Angina pectoris [Unknown]
  - Dyspnoea exertional [Unknown]
  - Dry skin [Unknown]
  - Second primary malignancy [Unknown]
  - Memory impairment [Unknown]
  - Nasopharyngitis [Unknown]
  - Eye irritation [Unknown]

NARRATIVE: CASE EVENT DATE: 2008
